FAERS Safety Report 18840072 (Version 5)
Quarter: 2021Q3

REPORT INFORMATION
  Report Type: Report from Study
  Country: US (occurrence: US)
  Receive Date: 20210204
  Receipt Date: 20210816
  Transmission Date: 20211014
  Serious: No
  Sender: FDA-Public Use
  Company Number: NVSC2021US019138

PATIENT
  Age: 29 Year
  Sex: Female

DRUGS (1)
  1. GILENYA [Suspect]
     Active Substance: FINGOLIMOD HYDROCHLORIDE
     Indication: RELAPSING-REMITTING MULTIPLE SCLEROSIS
     Dosage: 0.5 MG, QD
     Route: 048
     Dates: start: 20210124

REACTIONS (4)
  - Piloerection [Recovered/Resolved]
  - Nervousness [Recovered/Resolved]
  - Feeling hot [Unknown]
  - Feeling cold [Recovered/Resolved]

NARRATIVE: CASE EVENT DATE: 20210124
